FAERS Safety Report 4483781-0 (Version None)
Quarter: 2004Q4

REPORT INFORMATION
  Report Type: 
  Country: None (occurrence: None)
  Receive Date: 20041025
  Receipt Date: 20040618
  Transmission Date: 20050328
  Serious: Yes (Hospitalization)
  Sender: FDA-Public Use
  Company Number: US-ABBOTT-04P-163-0264759-00

PATIENT
  Sex: Male

DRUGS (4)
  1. RITONAVIR SOFT GELATIN CAPSULES [Suspect]
     Indication: HIV INFECTION
     Route: 048
     Dates: start: 20040513
  2. FUZEON [Concomitant]
     Indication: HIV INFECTION
     Route: 058
     Dates: start: 20040513
  3. ZIDOVUDINE W/LAMIVUDINE [Concomitant]
     Indication: HIV INFECTION
     Route: 048
     Dates: start: 20040513
  4. TIPRANAVIR [Concomitant]
     Indication: HIV INFECTION
     Dates: start: 20040513

REACTIONS (17)
  - ANAEMIA [None]
  - ASTHENIA [None]
  - BACTERIAL INFECTION [None]
  - CHEST PAIN [None]
  - CYTOMEGALOVIRUS INFECTION [None]
  - DIARRHOEA [None]
  - DYSPHAGIA [None]
  - IMMUNE RECONSTITUTION SYNDROME [None]
  - IMMUNE SYSTEM DISORDER [None]
  - MYCOBACTERIUM AVIUM COMPLEX INFECTION [None]
  - ODYNOPHAGIA [None]
  - OESOPHAGEAL ULCER [None]
  - PANCYTOPENIA [None]
  - PNEUMONIA [None]
  - PULMONARY OEDEMA [None]
  - PYREXIA [None]
  - VIRAL INFECTION [None]
